FAERS Safety Report 16836538 (Version 1)
Quarter: 2019Q3

REPORT INFORMATION
  Report Type: Report from Study
  Country: None (occurrence: HU)
  Receive Date: 20190921
  Receipt Date: 20190921
  Transmission Date: 20191005
  Serious: Yes (Hospitalization)
  Sender: FDA-Public Use
  Company Number: HU-ABBVIE-19K-076-2935234-00

PATIENT
  Age: 61 Year
  Sex: Female

DRUGS (3)
  1. HUMIRA [Suspect]
     Active Substance: ADALIMUMAB
     Indication: RHEUMATOID ARTHRITIS
     Route: 058
     Dates: start: 201904, end: 20190808
  2. MEDROL [Concomitant]
     Active Substance: METHYLPREDNISOLONE
     Indication: RHEUMATOID ARTHRITIS
     Dosage: AS REQUIRED. STARTED SEVERAL YEARS AGO
     Route: 048
  3. METAZOL [Concomitant]
     Indication: RHEUMATOID ARTHRITIS
     Dosage: STARTED SEVERAL YEARS AGO
     Route: 048

REACTIONS (6)
  - C-reactive protein increased [Recovering/Resolving]
  - Arthralgia [Recovering/Resolving]
  - Laboratory test abnormal [Recovering/Resolving]
  - Pyrexia [Recovered/Resolved]
  - Red blood cell sedimentation rate increased [Recovering/Resolving]
  - Inflammation [Recovering/Resolving]

NARRATIVE: CASE EVENT DATE: 201906
